FAERS Safety Report 7386613-6 (Version None)
Quarter: 2011Q1

REPORT INFORMATION
  Report Type: 
  Country: None (occurrence: None)
  Receive Date: 20110323
  Receipt Date: 20110321
  Transmission Date: 20110831
  Serious: Yes (Hospitalization, Other)
  Sender: FDA-Public Use
  Company Number: CL-302-2011

PATIENT
  Age: 22 Year
  Sex: Female

DRUGS (1)
  1. CIPROFLOXACIN UNK [Suspect]
     Indication: PYELONEPHRITIS
     Dosage: 500MG BD

REACTIONS (6)
  - HEADACHE [None]
  - VISION BLURRED [None]
  - STRABISMUS [None]
  - DIPLOPIA [None]
  - BENIGN INTRACRANIAL HYPERTENSION [None]
  - PAPILLOEDEMA [None]
